APPROVED DRUG PRODUCT: ESMOLOL HYDROCHLORIDE
Active Ingredient: ESMOLOL HYDROCHLORIDE
Strength: 10MG/ML
Dosage Form/Route: INJECTABLE;INJECTION
Application: A208538 | Product #001 | TE Code: AP
Applicant: GLAND PHARMA LTD
Approved: Aug 14, 2019 | RLD: No | RS: No | Type: RX